FAERS Safety Report 7365306-5 (Version None)
Quarter: 2011Q1

REPORT INFORMATION
  Report Type: 
  Country: None (occurrence: None)
  Receive Date: 20110322
  Receipt Date: 20110314
  Transmission Date: 20110831
  Serious: No
  Sender: FDA-Public Use
  Company Number: US-BIOGENIDEC-2011BI009500

PATIENT
  Sex: Female

DRUGS (4)
  1. TYSABRI [Suspect]
     Indication: MULTIPLE SCLEROSIS
     Route: 042
     Dates: start: 20110209
  2. LISINOPRIL [Concomitant]
     Indication: HYPERTENSION
  3. PETASIN [Concomitant]
     Indication: BLOOD CHOLESTEROL INCREASED
  4. COUMADIN [Concomitant]
     Indication: THROMBOSIS

REACTIONS (5)
  - DYSPNOEA [None]
  - AXILLARY PAIN [None]
  - ARTHRALGIA [None]
  - MUSCLE TIGHTNESS [None]
  - MUSCLE SPASTICITY [None]
